FAERS Safety Report 6530152-9 (Version None)
Quarter: 2009Q4

REPORT INFORMATION
  Report Type: 
  Country: None (occurrence: None)
  Receive Date: 20091231
  Receipt Date: 20091216
  Transmission Date: 20100525
  Serious: Yes (Hospitalization)
  Sender: FDA-Public Use
  Company Number: 2009SP042200

PATIENT
  Age: 90 Year
  Sex: Female

DRUGS (3)
  1. NORSET       (MIRTAZAPINE) [Suspect]
     Indication: DEPRESSION
     Dosage: 15 MG;QD;PO
     Route: 048
     Dates: start: 20090501, end: 20091114
  2. AUGMENTIN [Concomitant]
  3. XANAX [Concomitant]

REACTIONS (5)
  - BLOOD CREATININE INCREASED [None]
  - CHEST PAIN [None]
  - DYSPNOEA [None]
  - HYPONATRAEMIA [None]
  - OEDEMA PERIPHERAL [None]
